FAERS Safety Report 6029482-9 (Version None)
Quarter: 2009Q1

REPORT INFORMATION
  Report Type: 
  Country: None (occurrence: None)
  Receive Date: 20090105
  Receipt Date: 20090105
  Transmission Date: 20090719
  Serious: Yes (Other)
  Sender: FDA-Public Use
  Company Number: None

PATIENT
  Sex: Female
  Weight: 69.4003 kg

DRUGS (8)
  1. REMICADE [Suspect]
     Indication: RHEUMATOID ARTHRITIS
     Dosage: 350MG Q 6 WEEKS IV
     Route: 042
     Dates: start: 20040601
  2. PREDNISONE TAB [Concomitant]
  3. TYLENOL (CAPLET) [Concomitant]
  4. NORVASC [Concomitant]
  5. PREMARIN [Concomitant]
  6. VICODIN [Concomitant]
  7. COSOPT EYEDROPS [Concomitant]
  8. PREVACID [Concomitant]

REACTIONS (4)
  - ABDOMINAL PAIN [None]
  - ANAEMIA [None]
  - DIVERTICULITIS [None]
  - RHEUMATOID ARTHRITIS [None]
